FAERS Safety Report 6336561-5 (Version None)
Quarter: 2009Q3

REPORT INFORMATION
  Report Type: 
  Country: None (occurrence: None)
  Receive Date: 20090831
  Receipt Date: 20090831
  Transmission Date: 20100115
  Serious: Yes (Disabling, Other)
  Sender: FDA-Public Use
  Company Number: None

PATIENT
  Age: 52 Year
  Sex: Female
  Weight: 102.0593 kg

DRUGS (2)
  1. BUPROPION HCL [Suspect]
     Indication: DEPRESSION
     Dates: start: 20090703, end: 20090708
  2. BUPROPION HCL [Suspect]
     Indication: DEPRESSION
     Dates: start: 20090824, end: 20090825

REACTIONS (5)
  - ANXIETY [None]
  - DEPRESSION [None]
  - IMPAIRED WORK ABILITY [None]
  - PRODUCT SUBSTITUTION ISSUE [None]
  - SUICIDAL IDEATION [None]
